FAERS Safety Report 7281090-8 (Version None)
Quarter: 2011Q1

REPORT INFORMATION
  Report Type: 
  Country: None (occurrence: None)
  Receive Date: 20110208
  Receipt Date: 20110204
  Transmission Date: 20110831
  Serious: Yes (Hospitalization, Other)
  Sender: FDA-Public Use
  Company Number: ES-MERCK-1011ESP00013

PATIENT
  Sex: Female

DRUGS (2)
  1. FOSAMAX [Suspect]
     Indication: OSTEOPOROSIS
     Route: 048
     Dates: start: 20020101, end: 20101101
  2. FOSAMAX [Suspect]
     Route: 048
     Dates: start: 19980101, end: 20020101

REACTIONS (2)
  - TIBIA FRACTURE [None]
  - FEMUR FRACTURE [None]
